FAERS Safety Report 8485808 (Version 5)
Quarter: 2012Q4

REPORT INFORMATION
  Report Type: 
  Country: US (occurrence: US)
  Receive Date: 20120330
  Receipt Date: 20121105
  Transmission Date: 20130627
  Serious: Yes (Hospitalization, Disabling, Other)
  Sender: FDA-Public Use
  Company Number: US-009507513-1203USA03407

PATIENT

DRUGS (6)
  1. FOSAMAX [Suspect]
     Indication: OSTEOPENIA
     Dosage: 10 mg
     Route: 048
  2. FOSAMAX [Suspect]
     Dosage: 70 mg, QW
     Route: 048
     Dates: start: 200209, end: 201007
  3. FOSAMAX [Suspect]
     Dosage: 70 mg
     Route: 048
     Dates: start: 20080807
  4. FOSAMAX PLUS D [Suspect]
     Dosage: 70mg/2800IU
     Route: 048
     Dates: start: 20051013
  5. ALENDRONATE SODIUM [Suspect]
     Dosage: 70mg
     Dates: start: 20090208
  6. HORMONES (UNSPECIFIED) [Concomitant]
     Dates: start: 1995

REACTIONS (40)
  - Open reduction of fracture [Unknown]
  - Osteoporosis [Unknown]
  - Stress fracture [Unknown]
  - Low turnover osteopathy [Unknown]
  - Femur fracture [Unknown]
  - Patella fracture [Unknown]
  - Tooth disorder [Unknown]
  - Adverse event [Unknown]
  - Hypercholesterolaemia [Unknown]
  - Impaired healing [Unknown]
  - Osteoarthritis [Unknown]
  - Conjunctival haemorrhage [Unknown]
  - Contusion [Unknown]
  - Ligament sprain [Unknown]
  - Occult blood positive [Unknown]
  - Large intestine polyp [Unknown]
  - Head injury [Unknown]
  - Muscle tightness [Unknown]
  - Joint injury [Unknown]
  - Seborrhoeic keratosis [Unknown]
  - Urinary incontinence [Unknown]
  - Supraventricular extrasystoles [Unknown]
  - Hypokalaemia [Unknown]
  - Leukocytosis [Recovered/Resolved]
  - Monoclonal gammopathy [Unknown]
  - Eczema [Unknown]
  - Fall [Unknown]
  - Nail dystrophy [Unknown]
  - Rib fracture [Unknown]
  - Fracture nonunion [Unknown]
  - Arthralgia [Unknown]
  - Hypophosphataemia [Unknown]
  - Dizziness [Unknown]
  - Nausea [Unknown]
  - Pain in extremity [Unknown]
  - Drug ineffective [Unknown]
  - Femur fracture [Unknown]
  - Aortic aneurysm [Unknown]
  - Gallbladder polyp [Unknown]
  - Cholelithiasis [Unknown]
